FAERS Safety Report 13628316 (Version 1)
Quarter: 2017Q2

REPORT INFORMATION
  Report Type: Spontaneous
  Country: US (occurrence: US)
  Receive Date: 20170531
  Receipt Date: 20170531
  Transmission Date: 20170830
  Serious: Yes (Other)
  Sender: FDA-Public Use
  Company Number: US-ASTELLAS-748200

PATIENT
  Age: 74 Year
  Sex: Male
  Weight: 69.5 kg

DRUGS (11)
  1. OXALIPLATIN. [Suspect]
     Active Substance: OXALIPLATIN
     Dosage: RECEIVED FIVE INFUSIONS.
     Route: 041
     Dates: start: 200904, end: 200904
  2. OXYCODONE [Concomitant]
     Active Substance: OXYCODONE
     Route: 065
  3. TAMSULOSIN [Concomitant]
     Active Substance: TAMSULOSIN
     Route: 065
  4. CITALOPRAM [Concomitant]
     Active Substance: CITALOPRAM HYDROBROMIDE
     Route: 065
  5. GEMCITABINE [Concomitant]
     Active Substance: GEMCITABINE\GEMCITABINE HYDROCHLORIDE
     Route: 065
  6. OXALIPLATIN. [Suspect]
     Active Substance: OXALIPLATIN
     Indication: PANCREATIC CARCINOMA
     Dosage: FORM: INFUSION
     Route: 041
     Dates: start: 20101109, end: 20101109
  7. XELODA [Suspect]
     Active Substance: CAPECITABINE
     Indication: PANCREATIC CARCINOMA
     Dosage: IN THE MORNING AND EVENING
     Route: 048
     Dates: start: 20101110, end: 20101116
  8. WARFARIN [Concomitant]
     Active Substance: WARFARIN
     Route: 065
  9. LOMOTIL [Concomitant]
     Active Substance: ATROPINE SULFATE\DIPHENOXYLATE HYDROCHLORIDE
     Route: 065
  10. TARCEVA [Suspect]
     Active Substance: ERLOTINIB HYDROCHLORIDE
     Indication: PANCREATIC CARCINOMA
     Route: 065
  11. BENAZEPRIL [Concomitant]
     Active Substance: BENAZEPRIL HYDROCHLORIDE
     Route: 065

REACTIONS (2)
  - Tumour marker increased [Unknown]
  - Decreased appetite [Unknown]

NARRATIVE: CASE EVENT DATE: 20101110
